FAERS Safety Report 20054761 (Version 1)
Quarter: 2021Q4

REPORT INFORMATION
  Report Type: Spontaneous
  Country: US (occurrence: None)
  Receive Date: 20211110
  Receipt Date: 20211110
  Transmission Date: 20220303
  Serious: Yes (Hospitalization)
  Sender: FDA-Public Use
  Company Number: None

PATIENT
  Age: 19 Year
  Sex: Male
  Weight: 103.1 kg

DRUGS (5)
  1. DAUNORUBICIN [Suspect]
     Active Substance: DAUNORUBICIN
     Indication: Product used for unknown indication
     Dates: end: 20211026
  2. METHOTREXATE [Suspect]
     Active Substance: METHOTREXATE
     Indication: Product used for unknown indication
     Dates: end: 20211102
  3. PEGASPARGASE [Suspect]
     Active Substance: PEGASPARGASE
     Indication: Product used for unknown indication
     Dosage: OTHER QUANTITY : 3750 IU;?
     Dates: end: 20211009
  4. PREDNISOLONE [Suspect]
     Active Substance: PREDNISOLONE
     Indication: Product used for unknown indication
     Dates: end: 20211101
  5. VINCRISTINE SULFATE [Suspect]
     Active Substance: VINCRISTINE SULFATE
     Indication: Product used for unknown indication
     Dates: end: 20211026

REACTIONS (12)
  - Cellulitis [None]
  - Ecthyma [None]
  - Biopsy skin abnormal [None]
  - Pseudomonas infection [None]
  - Pain [None]
  - Mechanical ventilation complication [None]
  - Hypoxia [None]
  - Packed red blood cell transfusion [None]
  - Bradycardia [None]
  - Lung assist device therapy [None]
  - Cellulitis [None]
  - Cardiac arrest [None]

NARRATIVE: CASE EVENT DATE: 20211105
